FAERS Safety Report 17650391 (Version 2)
Quarter: 2020Q2

REPORT INFORMATION
  Report Type: Spontaneous
  Country: RO (occurrence: RO)
  Receive Date: 20200409
  Receipt Date: 20200508
  Transmission Date: 20200713
  Serious: Yes (Hospitalization, Other)
  Sender: FDA-Public Use
  Company Number: RO-ELI_LILLY_AND_COMPANY-RO202003012651

PATIENT
  Age: 55 Year
  Sex: Male

DRUGS (16)
  1. CARBOPLATIN. [Suspect]
     Active Substance: CARBOPLATIN
     Indication: CHEMOTHERAPY
     Dosage: 3 COURSES, OTHER
     Route: 065
  2. PENTOXIFYLLINE. [Suspect]
     Active Substance: PENTOXIFYLLINE
     Indication: VASODILATATION
  3. METHYLPREDNISOLONE. [Suspect]
     Active Substance: METHYLPREDNISOLONE
     Indication: SCLERODERMA
     Dosage: UNK, UNKNOWN
     Route: 065
  4. CYCLOPHOSPHAMIDE. [Suspect]
     Active Substance: CYCLOPHOSPHAMIDE
  5. METOPROLOL. [Suspect]
     Active Substance: METOPROLOL
     Indication: SCLERODERMA
     Dosage: UNK, UNKNOWN
     Route: 065
  6. CYCLOPHOSPHAMIDE. [Suspect]
     Active Substance: CYCLOPHOSPHAMIDE
     Indication: PRODUCT USED FOR UNKNOWN INDICATION
     Dosage: UNK, UNKNOWN
     Route: 065
  7. OMEPRAZOLE. [Suspect]
     Active Substance: OMEPRAZOLE
     Indication: PROPHYLAXIS AGAINST GASTROINTESTINAL ULCER
  8. OMEPRAZOLE. [Suspect]
     Active Substance: OMEPRAZOLE
     Dosage: UNK
  9. SULODEXIDE [Suspect]
     Active Substance: SULODEXIDE
     Indication: VASODILATATION
  10. PENTOXIFYLLINE. [Suspect]
     Active Substance: PENTOXIFYLLINE
     Indication: SCLERODERMA
     Dosage: UNK, UNKNOWN
     Route: 065
  11. SULODEXIDE [Suspect]
     Active Substance: SULODEXIDE
     Indication: SCLERODERMA
     Dosage: UNK, UNKNOWN
     Route: 065
  12. AMLODIPINE [Suspect]
     Active Substance: AMLODIPINE BESYLATE
     Indication: SCLERODERMA
     Dosage: UNK, UNKNOWN
     Route: 065
  13. BOSENTAN. [Suspect]
     Active Substance: BOSENTAN
     Indication: SYSTEMIC SCLERODERMA
     Dosage: UNK, UNKNOWN
     Route: 048
  14. OMEPRAZOLE. [Suspect]
     Active Substance: OMEPRAZOLE
     Indication: GASTRIC DISORDER
     Dosage: UNK, UNKNOWN
     Route: 065
  15. GEMCITABINE HYDROCHLORIDE. [Suspect]
     Active Substance: GEMCITABINE HYDROCHLORIDE
     Indication: CHEMOTHERAPY
     Dosage: 3 COURSES , CYCLICAL
     Route: 065
  16. AMLODIPINE BESILATE [Suspect]
     Active Substance: AMLODIPINE BESYLATE
     Indication: VASODILATATION
     Dosage: UNK
     Route: 065

REACTIONS (27)
  - Extremity necrosis [Unknown]
  - Metastatic neoplasm [Unknown]
  - Pleural mass [Unknown]
  - Pain in extremity [Recovered/Resolved]
  - Cushing^s syndrome [Unknown]
  - Paraesthesia [Recovered/Resolved]
  - Mitral valve prolapse [Unknown]
  - Malignant neoplasm progression [Unknown]
  - Anxiety [Unknown]
  - Pallor [Recovered/Resolved]
  - Metabolic syndrome [Unknown]
  - Glucose tolerance impaired [Unknown]
  - Peripheral artery occlusion [Recovered/Resolved]
  - Dyslipidaemia [Unknown]
  - Obesity [Unknown]
  - Aphasia [Unknown]
  - Leukopenia [Unknown]
  - Hypertension [Unknown]
  - Inflammation [Unknown]
  - Pulse absent [Recovered/Resolved]
  - Speech disorder [Unknown]
  - Drug ineffective [Unknown]
  - Peripheral ischaemia [Recovered/Resolved]
  - Anaemia [Unknown]
  - Peripheral coldness [Recovered/Resolved]
  - Drug dependence [Unknown]
  - Hilar lymphadenopathy [Unknown]
